FAERS Safety Report 5463670-5 (Version None)
Quarter: 2007Q3

REPORT INFORMATION
  Report Type: 
  Country: None (occurrence: None)
  Receive Date: 20070919
  Receipt Date: 20070907
  Transmission Date: 20080115
  Serious: Yes (Other)
  Sender: FDA-Public Use
  Company Number: 237641K07USA

PATIENT
  Age: 57 Year
  Sex: Female

DRUGS (4)
  1. REBIF [Suspect]
     Indication: MULTIPLE SCLEROSIS
     Dosage: 44 MCG, 3 IN 1 WEEKS, SUBCUTANEOUS
     Route: 058
     Dates: start: 20060630
  2. CLONAZEPAM [Concomitant]
  3. TRAMADOL HCL [Concomitant]
  4. TYLENOL PM (TYLENOL PM) [Concomitant]

REACTIONS (1)
  - NEPHROLITHIASIS [None]
